FAERS Safety Report 9200459 (Version 3)
Quarter: 2014Q2

REPORT INFORMATION
  Report Type: Spontaneous
  Country: US (occurrence: US)
  Receive Date: 20130329
  Receipt Date: 20140428
  Transmission Date: 20141212
  Serious: No
  Sender: FDA-Public Use
  Company Number: US-009507513-1303USA014348

PATIENT
  Sex: Male

DRUGS (4)
  1. PROPECIA [Suspect]
     Indication: ALOPECIA
     Dosage: 1 MG, DAILY
     Route: 048
     Dates: start: 19990316, end: 20060605
  2. GLUCOPHAGE [Concomitant]
     Indication: DIABETES MELLITUS
     Dosage: 850 MG, BID
  3. ALLOPURINOL [Concomitant]
     Indication: CRYSTAL ARTHROPATHY
     Dosage: UNK
  4. GLUCOTROL XL [Concomitant]
     Indication: DIABETES MELLITUS
     Dosage: 10 MG, QD

REACTIONS (10)
  - Cognitive disorder [Not Recovered/Not Resolved]
  - Sexual dysfunction [Not Recovered/Not Resolved]
  - Erectile dysfunction [Unknown]
  - Nephrolithiasis [Unknown]
  - Oedema [Unknown]
  - Hypercholesterolaemia [Unknown]
  - IgA nephropathy [Unknown]
  - Ureteral stent insertion [Unknown]
  - Carpal tunnel syndrome [Unknown]
  - Vasectomy [Unknown]
